FAERS Safety Report 25419614 (Version 1)
Quarter: 2025Q2

REPORT INFORMATION
  Report Type: Spontaneous
  Country: US (occurrence: US)
  Receive Date: 20250610
  Receipt Date: 20250610
  Transmission Date: 20250716
  Serious: Yes (Other)
  Sender: GE HEALTHCARE
  Company Number: US-GE HEALTHCARE-2025CSU007403

PATIENT
  Age: 77 Year
  Sex: Female

DRUGS (1)
  1. OMNIPAQUE [Suspect]
     Active Substance: IOHEXOL
     Indication: Computerised tomogram
     Route: 065
     Dates: start: 20250605, end: 20250605

REACTIONS (2)
  - Throat tightness [Recovering/Resolving]
  - Cough [Recovering/Resolving]

NARRATIVE: CASE EVENT DATE: 20250605
